FAERS Safety Report 7791665-5 (Version None)
Quarter: 2011Q4

REPORT INFORMATION
  Report Type: 
  Country: None (occurrence: None)
  Receive Date: 20111003
  Receipt Date: 20110929
  Transmission Date: 20120403
  Serious: Yes (Death)
  Sender: FDA-Public Use
  Company Number: US-SANOFI-AVENTIS-2011SA063846

PATIENT
  Age: 78 Year
  Sex: Male

DRUGS (5)
  1. NEUPOGEN [Concomitant]
     Dates: start: 20110214, end: 20110214
  2. HORMONES AND RELATED AGENTS [Concomitant]
     Indication: PROSTATE CANCER
  3. NEUPOGEN [Concomitant]
     Dates: start: 20110221, end: 20110221
  4. JEVTANA KIT [Suspect]
     Indication: PROSTATE CANCER
     Route: 041
     Dates: start: 20110214, end: 20110214
  5. JEVTANA KIT [Suspect]
     Route: 041
     Dates: start: 20110221, end: 20110221

REACTIONS (2)
  - DEATH [None]
  - NEUTROPENIA [None]
